FAERS Safety Report 4951039-9 (Version None)
Quarter: 2006Q1

REPORT INFORMATION
  Report Type: 
  Country: None (occurrence: None)
  Receive Date: 20060322
  Receipt Date: 20060315
  Transmission Date: 20060701
  Serious: Yes (Hospitalization)
  Sender: FDA-Public Use
  Company Number: AU-MERCK-0603AUS00126

PATIENT
  Age: 81 Year
  Sex: Female

DRUGS (12)
  1. FOSAMAX [Suspect]
     Indication: OSTEOPOROSIS
     Route: 048
     Dates: start: 19970219, end: 19970402
  2. FOSAMAX [Suspect]
     Route: 048
     Dates: start: 20020815
  3. FOSAMAX [Suspect]
     Route: 048
     Dates: end: 20050121
  4. FOSAMAX [Suspect]
     Route: 048
     Dates: start: 20050715, end: 20051014
  5. FOSAMAX [Suspect]
     Route: 048
     Dates: start: 20051121, end: 20060304
  6. INDAPAMIDE [Concomitant]
     Indication: HYPERTENSION
     Route: 048
     Dates: end: 20050101
  7. INDAPAMIDE [Concomitant]
     Route: 048
     Dates: start: 20050101
  8. ATENOLOL [Concomitant]
     Indication: BLOOD PRESSURE ABNORMAL
     Route: 048
     Dates: start: 20050101
  9. ATENOLOL [Concomitant]
     Route: 048
     Dates: end: 20050101
  10. TELMISARTAN [Concomitant]
     Indication: BLOOD PRESSURE ABNORMAL
     Route: 065
     Dates: start: 20050101
  11. TELMISARTAN [Concomitant]
     Route: 065
     Dates: end: 20050101
  12. DILL AND FRANGULA AND GLYCYRRHIZA AND PSYLLIUM HUSK AND SENNA [Concomitant]
     Indication: CONSTIPATION
     Route: 065

REACTIONS (9)
  - COLD SWEAT [None]
  - DISORIENTATION [None]
  - FEELING HOT [None]
  - LOSS OF CONSCIOUSNESS [None]
  - MASS [None]
  - NAUSEA [None]
  - NEOPLASM MALIGNANT [None]
  - RASH [None]
  - VOMITING [None]
